FAERS Safety Report 16678581 (Version 2)
Quarter: 2019Q3

REPORT INFORMATION
  Report Type: Spontaneous
  Country: DE (occurrence: DE)
  Receive Date: 20190807
  Receipt Date: 20190930
  Transmission Date: 20191004
  Serious: Yes (Other)
  Sender: FDA-Public Use
  Company Number: DE-MYLANLABS-2019M1072975

PATIENT
  Sex: Male
  Weight: 130 kg

DRUGS (1)
  1. VALSARTAN MYLAN [Suspect]
     Active Substance: VALSARTAN
     Indication: HYPERTENSION
     Dosage: 160 MILLIGRAM, QD
     Route: 048
     Dates: start: 201802, end: 20190313

REACTIONS (2)
  - Mental impairment [Not Recovered/Not Resolved]
  - Impaired quality of life [Unknown]
